FAERS Safety Report 4666776-3 (Version None)
Quarter: 2005Q2

REPORT INFORMATION
  Report Type: 
  Country: None (occurrence: None)
  Receive Date: 20050505
  Receipt Date: 20050421
  Transmission Date: 20051028
  Serious: Yes (Hospitalization)
  Sender: FDA-Public Use
  Company Number: 200510224BCA

PATIENT
  Age: 63 Year
  Sex: Male

DRUGS (2)
  1. GAMUNEX [Suspect]
  2. DILANTIN [Concomitant]

REACTIONS (4)
  - BLOOD LACTATE DEHYDROGENASE INCREASED [None]
  - COOMBS DIRECT TEST POSITIVE [None]
  - HAEMATURIA [None]
  - HAEMOGLOBIN DECREASED [None]
